FAERS Safety Report 7731070-0 (Version None)
Quarter: 2011Q3

REPORT INFORMATION
  Report Type: 
  Country: None (occurrence: None)
  Receive Date: 20110906
  Receipt Date: 20110906
  Transmission Date: 20111222
  Serious: Yes (Other)
  Sender: FDA-Public Use
  Company Number: None

PATIENT
  Age: 35 Year
  Sex: Female
  Weight: 62.142 kg

DRUGS (7)
  1. ORTHO TRI-CYCLEN LO [Concomitant]
  2. LORAZEPAM [Concomitant]
  3. ENBREL [Concomitant]
  4. SEROQUEL [Concomitant]
  5. DEPO-MEDROL [Suspect]
     Indication: POLYCHONDRITIS
     Dosage: 1ML
     Route: 030
     Dates: start: 20110824, end: 20110824
  6. SURECLICK [Concomitant]
  7. HYDROCODONE BITARTRATE AND ACETAMINOPHEN [Concomitant]

REACTIONS (4)
  - ORAL INFECTION [None]
  - OROPHARYNGEAL BLISTERING [None]
  - ORAL MUCOSAL ERYTHEMA [None]
  - PALATAL OEDEMA [None]
